FAERS Safety Report 12233493 (Version 1)
Quarter: 2016Q2

REPORT INFORMATION
  Report Type: Spontaneous
  Country: US (occurrence: None)
  Receive Date: 20160401
  Receipt Date: 20160401
  Transmission Date: 20160815
  Serious: No
  Sender: FDA-Public Use
  Company Number: None

PATIENT
  Age: 55 Year
  Sex: Female
  Weight: 73.48 kg

DRUGS (17)
  1. COPAXONE [Suspect]
     Active Substance: GLATIRAMER ACETATE
     Indication: MULTIPLE SCLEROSIS
     Dosage: 1 3X/WEEK--TUES, THUR, SUN INJECTION, SUBCUTANEOUS
     Route: 058
     Dates: start: 20160222, end: 20160303
  2. PERCOCET [Concomitant]
     Active Substance: ACETAMINOPHEN\OXYCODONE HYDROCHLORIDE
  3. MAGNESIUM [Concomitant]
     Active Substance: MAGNESIUM
  4. SYNTHROID [Concomitant]
     Active Substance: LEVOTHYROXINE SODIUM
  5. NEURONTIN [Concomitant]
     Active Substance: GABAPENTIN
  6. CYMBALTA [Concomitant]
     Active Substance: DULOXETINE HYDROCHLORIDE
  7. VITAMIN B12 [Concomitant]
     Active Substance: CYANOCOBALAMIN
  8. VITAMIN D [Concomitant]
     Active Substance: CHOLECALCIFEROL
  9. ZINC [Concomitant]
     Active Substance: ZINC\ZINC CHLORIDE
  10. AMANTADINE [Concomitant]
     Active Substance: AMANTADINE
  11. PROBIOTIC [Concomitant]
     Active Substance: PROBIOTICS NOS
  12. TRAMADOL HYDROCHLORIDE. [Concomitant]
     Active Substance: TRAMADOL HYDROCHLORIDE
  13. BACLOFEN. [Concomitant]
     Active Substance: BACLOFEN
  14. PROMETRIUM [Concomitant]
     Active Substance: PROGESTERONE
  15. LAMICTAL [Concomitant]
     Active Substance: LAMOTRIGINE
  16. PREVACID [Concomitant]
     Active Substance: LANSOPRAZOLE
  17. CYTOMEL [Concomitant]
     Active Substance: LIOTHYRONINE SODIUM

REACTIONS (9)
  - Back pain [None]
  - Chills [None]
  - Tremor [None]
  - Nausea [None]
  - Neck pain [None]
  - Movement disorder [None]
  - Migraine [None]
  - Vomiting [None]
  - Pain [None]

NARRATIVE: CASE EVENT DATE: 20160303
